APPROVED DRUG PRODUCT: LURASIDONE HYDROCHLORIDE
Active Ingredient: LURASIDONE HYDROCHLORIDE
Strength: 120MG
Dosage Form/Route: TABLET;ORAL
Application: A213248 | Product #005 | TE Code: AB
Applicant: ALEMBIC PHARMACEUTICALS LTD
Approved: May 13, 2021 | RLD: No | RS: No | Type: RX